FAERS Safety Report 7350932-X (Version None)
Quarter: 2011Q1

REPORT INFORMATION
  Report Type: 
  Country: None (occurrence: None)
  Receive Date: 20110314
  Receipt Date: 20110312
  Transmission Date: 20110831
  Serious: No
  Sender: FDA-Public Use
  Company Number: US-PFIZER INC-2011052759

PATIENT
  Sex: Female
  Weight: 68.03 kg

DRUGS (7)
  1. LEXAPRO [Concomitant]
     Dosage: 20 MG, UNK
  2. ABILIFY [Concomitant]
     Dosage: 5 MG, UNK
  3. OMEPRAZOLE [Concomitant]
     Dosage: 20 MG, UNK
  4. FLUTICASONE [Concomitant]
     Dosage: 50 UG, UNK
     Route: 055
  5. ASPIRIN [Concomitant]
  6. CHANTIX [Suspect]
     Indication: SMOKING CESSATION THERAPY
     Dosage: 0.5 MG, 1X/DAY
     Route: 048
     Dates: start: 20110301
  7. CHANTIX [Suspect]
     Dosage: 1 MG, 2X/DAY
     Route: 048
     Dates: start: 20110301

REACTIONS (3)
  - HEADACHE [None]
  - NERVOUSNESS [None]
  - DIZZINESS [None]
